FAERS Safety Report 17187371 (Version 2)
Quarter: 2020Q1

REPORT INFORMATION
  Report Type: Report from Study
  Country: US (occurrence: US)
  Receive Date: 20191220
  Receipt Date: 20200129
  Transmission Date: 20200409
  Serious: No
  Sender: FDA-Public Use
  Company Number: NVSC2019US023953

PATIENT
  Sex: Female

DRUGS (1)
  1. GILENYA [Suspect]
     Active Substance: FINGOLIMOD HYDROCHLORIDE
     Indication: MULTIPLE SCLEROSIS
     Dosage: 0.5 MG, QD
     Route: 048
     Dates: start: 20170609

REACTIONS (6)
  - Blood pressure increased [Unknown]
  - Speech disorder [Unknown]
  - Asthenia [Unknown]
  - Feeling abnormal [Unknown]
  - Amnesia [Unknown]
  - Fatigue [Unknown]
